FAERS Safety Report 24043141 (Version 1)
Quarter: 2024Q3

REPORT INFORMATION
  Report Type: Spontaneous
  Country: IT (occurrence: IT)
  Receive Date: 20240702
  Receipt Date: 20240702
  Transmission Date: 20241016
  Serious: Yes (Other)
  Sender: LUNDBECK
  Company Number: IT-SA-2024SA188523

PATIENT

DRUGS (4)
  1. VIGABATRIN [Suspect]
     Active Substance: VIGABATRIN
     Indication: Infantile spasms
     Dosage: 140 MG/KG, QD
  2. NITRAZEPAM [Concomitant]
     Active Substance: NITRAZEPAM
     Indication: Infantile spasms
  3. VALPROIC ACID [Concomitant]
     Active Substance: VALPROIC ACID
     Indication: Infantile spasms
  4. RUFINAMIDE [Concomitant]
     Active Substance: RUFINAMIDE
     Indication: Infantile spasms

REACTIONS (8)
  - Encephalopathy [Recovered/Resolved]
  - Dyskinesia [Recovered/Resolved]
  - Myoclonus [Recovered/Resolved]
  - Hypotonia [Recovered/Resolved]
  - Apathy [Recovered/Resolved]
  - Somnolence [Recovered/Resolved]
  - Lethargy [Recovered/Resolved]
  - Hyperkinesia [Recovered/Resolved]
